FAERS Safety Report 16076209 (Version 1)
Quarter: 2019Q1

REPORT INFORMATION
  Report Type: Report from Study
  Country: IT (occurrence: IT)
  Receive Date: 20190315
  Receipt Date: 20190315
  Transmission Date: 20190418
  Serious: Yes (Hospitalization)
  Sender: FDA-Public Use
  Company Number: IT-ACCORD-112785

PATIENT
  Age: 51 Year
  Sex: Female

DRUGS (4)
  1. QUETIAPINE TEVA [Suspect]
     Active Substance: QUETIAPINE
     Dosage: STRENGTH: 300 MG
     Route: 048
     Dates: start: 20180912, end: 20180912
  2. QUETIAPINE FUMARATE ACCORD [Suspect]
     Active Substance: QUETIAPINE FUMARATE
     Dosage: STRENGTH: 200 MG
     Route: 048
     Dates: start: 20180912, end: 20180912
  3. LEXOTAN [Suspect]
     Active Substance: BROMAZEPAM
     Dosage: STRENGTH: 2.5 MG / ML
     Route: 048
     Dates: start: 20180912, end: 20180912
  4. VALPROIC ACID. [Suspect]
     Active Substance: VALPROIC ACID
     Dosage: STRENGTH: 500 MG
     Route: 048
     Dates: start: 20180912, end: 20180912

REACTIONS (4)
  - Hypokinesia [Recovered/Resolved]
  - Loss of consciousness [Recovered/Resolved]
  - Sopor [Recovered/Resolved]
  - Bradyphrenia [Recovered/Resolved]

NARRATIVE: CASE EVENT DATE: 20180912
